FAERS Safety Report 10463819 (Version 3)
Quarter: 2014Q3

REPORT INFORMATION
  Report Type: Spontaneous
  Country: JP (occurrence: JP)
  Receive Date: 20140919
  Receipt Date: 20140926
  Transmission Date: 20150326
  Serious: Yes (Other)
  Sender: FDA-Public Use
  Company Number: PHHY2013JP152027

PATIENT
  Age: 14 Year
  Sex: Female

DRUGS (6)
  1. VALPROIC ACID. [Suspect]
     Active Substance: VALPROIC ACID
     Indication: INFANTILE SPASMS
  2. CARBAMAZEPINE. [Suspect]
     Active Substance: CARBAMAZEPINE
     Indication: INFANTILE SPASMS
  3. EVEROLIMUS [Suspect]
     Active Substance: EVEROLIMUS
     Indication: ADRENAL NEOPLASM
  4. VALPROIC ACID. [Suspect]
     Active Substance: VALPROIC ACID
     Indication: PARTIAL SEIZURES
  5. CARBAMAZEPINE. [Suspect]
     Active Substance: CARBAMAZEPINE
     Indication: PARTIAL SEIZURES
  6. EVEROLIMUS [Suspect]
     Active Substance: EVEROLIMUS
     Indication: OFF LABEL USE

REACTIONS (5)
  - Stomatitis [Not Recovered/Not Resolved]
  - Rash [Recovering/Resolving]
  - Gamma-glutamyltransferase increased [Not Recovered/Not Resolved]
  - Amenorrhoea [Not Recovered/Not Resolved]
  - Status epilepticus [Unknown]

NARRATIVE: CASE EVENT DATE: 20121211
